FAERS Safety Report 20549906 (Version 1)
Quarter: 2022Q1

REPORT INFORMATION
  Report Type: Spontaneous
  Country: US (occurrence: US)
  Receive Date: 20220304
  Receipt Date: 20220304
  Transmission Date: 20220423
  Serious: No
  Sender: FDA-Public Use
  Company Number: US-CIPLA LTD.-2021US01109

PATIENT

DRUGS (2)
  1. SERTRALINE [Suspect]
     Active Substance: SERTRALINE HYDROCHLORIDE
     Indication: Anxiety
     Dosage: 25 MILLIGRAM, QD
     Route: 065
     Dates: start: 20210130
  2. LISINOPRIL [Concomitant]
     Active Substance: LISINOPRIL
     Indication: Hypertension
     Dosage: UNK
     Route: 065

REACTIONS (7)
  - Paraesthesia oral [Recovering/Resolving]
  - Feeling abnormal [Recovering/Resolving]
  - Tongue dry [Recovering/Resolving]
  - Feeling of body temperature change [Recovering/Resolving]
  - Waist circumference decreased [Not Recovered/Not Resolved]
  - Illness [Unknown]
  - Fatigue [Unknown]

NARRATIVE: CASE EVENT DATE: 20210101
